FAERS Safety Report 17917769 (Version 1)
Quarter: 2020Q2

REPORT INFORMATION
  Report Type: Spontaneous
  Country: JP (occurrence: JP)
  Receive Date: 20200619
  Receipt Date: 20200619
  Transmission Date: 20200714
  Serious: Yes (Other)
  Sender: FDA-Public Use
  Company Number: JP-IPCA LABORATORIES LIMITED-IPC-2020-JP-001939

PATIENT

DRUGS (9)
  1. ATENOLOL. [Suspect]
     Active Substance: ATENOLOL
     Indication: VENTRICULAR TACHYCARDIA
  2. CIBENZOLINE [Suspect]
     Active Substance: CIFENLINE
     Indication: HYPERTROPHIC CARDIOMYOPATHY
     Dosage: UNK
     Route: 065
  3. CIBENZOLINE [Suspect]
     Active Substance: CIFENLINE
     Indication: VENTRICULAR TACHYCARDIA
  4. AMIODARONE [Suspect]
     Active Substance: AMIODARONE
     Indication: VENTRICULAR TACHYCARDIA
  5. CIBENZOLINE [Suspect]
     Active Substance: CIFENLINE
     Indication: ATRIAL FIBRILLATION
  6. ATENOLOL. [Suspect]
     Active Substance: ATENOLOL
     Indication: ATRIAL FIBRILLATION
  7. AMIODARONE [Suspect]
     Active Substance: AMIODARONE
     Indication: ATRIAL FIBRILLATION
  8. ATENOLOL. [Suspect]
     Active Substance: ATENOLOL
     Indication: HYPERTROPHIC CARDIOMYOPATHY
     Dosage: UNK
     Route: 065
  9. AMIODARONE [Suspect]
     Active Substance: AMIODARONE
     Indication: HYPERTROPHIC CARDIOMYOPATHY
     Dosage: UNK
     Route: 065

REACTIONS (1)
  - Syncope [Unknown]

NARRATIVE: CASE EVENT DATE: 2016
